FAERS Safety Report 12378159 (Version 1)
Quarter: 2016Q2

REPORT INFORMATION
  Report Type: Spontaneous
  Country: SG (occurrence: DK)
  Receive Date: 20160517
  Receipt Date: 20160517
  Transmission Date: 20160815
  Serious: Yes (Death, Other)
  Sender: FDA-Public Use
  Company Number: SG-JNJFOC-20141013966

PATIENT

DRUGS (1)
  1. DOXORUBICIN HYDROCHLORIDE. [Suspect]
     Active Substance: DOXORUBICIN HYDROCHLORIDE
     Indication: SARCOMA
     Route: 042

REACTIONS (5)
  - Off label use [Unknown]
  - Ejection fraction decreased [Unknown]
  - Product use issue [Unknown]
  - Cardiac death [Fatal]
  - Cardiac failure [Unknown]
